FAERS Safety Report 21976584 (Version 2)
Quarter: 2023Q1

REPORT INFORMATION
  Report Type: Report from Study
  Country: US (occurrence: US)
  Receive Date: 20230210
  Receipt Date: 20230215
  Transmission Date: 20230417
  Serious: No
  Sender: FDA-Public Use
  Company Number: US-002147023-NVSC2023US027137

PATIENT
  Age: 57 Year

DRUGS (1)
  1. ENTRESTO [Suspect]
     Active Substance: SACUBITRIL\VALSARTAN
     Indication: Left ventricular failure
     Dosage: 0.5 DOSAGE FORM, BID (24-26MG)
     Route: 048
     Dates: start: 20220513

REACTIONS (3)
  - Drug intolerance [Unknown]
  - Wrong technique in product usage process [Unknown]
  - Prescribed underdose [Unknown]
